FAERS Safety Report 5278664-2 (Version None)
Quarter: 2007Q1

REPORT INFORMATION
  Report Type: 
  Country: None (occurrence: None)
  Receive Date: 20070321
  Receipt Date: 20070307
  Transmission Date: 20070707
  Serious: Yes (Death)
  Sender: FDA-Public Use
  Company Number: A-CH2007-14496

PATIENT
  Age: 26 Year
  Sex: Female

DRUGS (1)
  1. TRACLEER [Suspect]
     Indication: PULMONARY HYPERTENSION
     Dosage: UNK, UNK, ORAL
     Route: 048
     Dates: start: 20051026

REACTIONS (4)
  - CONDITION AGGRAVATED [None]
  - PNEUMONIA [None]
  - PULMONARY HYPERTENSION [None]
  - TREATMENT NONCOMPLIANCE [None]
